FAERS Safety Report 21133661 (Version 2)
Quarter: 2022Q3

REPORT INFORMATION
  Report Type: Spontaneous
  Country: US (occurrence: US)
  Receive Date: 20220726
  Receipt Date: 20220805
  Transmission Date: 20221026
  Serious: No
  Sender: FDA-Public Use
  Company Number: US-PFIZER INC-PV202200028503

PATIENT
  Age: 19 Year
  Sex: Female
  Weight: 68.5 kg

DRUGS (1)
  1. TACROLIMUS [Suspect]
     Active Substance: TACROLIMUS
     Indication: Heart transplant
     Dosage: 1.5 MG, 2X/DAY

REACTIONS (1)
  - Gastrointestinal toxicity [Unknown]
